FAERS Safety Report 7213728-5 (Version None)
Quarter: 2010Q4

REPORT INFORMATION
  Report Type: 
  Country: None (occurrence: None)
  Receive Date: 20101126
  Receipt Date: 20100901
  Transmission Date: 20110411
  Serious: Yes (Death)
  Sender: FDA-Public Use
  Company Number: 163-22393-10090451

PATIENT
  Age: 24 Year
  Sex: Male

DRUGS (1)
  1. ISTODAX [Suspect]
     Indication: HODGKIN'S DISEASE
     Dosage: INTRAVENOUS
     Route: 042

REACTIONS (2)
  - DISEASE PROGRESSION [None]
  - HODGKIN'S DISEASE [None]
